FAERS Safety Report 4290157-8 (Version None)
Quarter: 2004Q1

REPORT INFORMATION
  Report Type: 
  Country: None (occurrence: None)
  Receive Date: 20040209
  Receipt Date: 20040129
  Transmission Date: 20041129
  Serious: Yes (Hospitalization)
  Sender: FDA-Public Use
  Company Number: NSADSS2001009705

PATIENT
  Age: 48 Year
  Sex: Female

DRUGS (1)
  1. LEUSTATIN [Suspect]
     Indication: HAIRY CELL LEUKAEMIA
     Dosage: IN 1 DAY , INTRAVENOUS DRIP
     Route: 041
     Dates: start: 20010305, end: 20010311

REACTIONS (5)
  - HAEMOGLOBIN DECREASED [None]
  - LEUKAEMIA RECURRENT [None]
  - PLATELET COUNT DECREASED [None]
  - STOMATITIS [None]
  - WHITE BLOOD CELL COUNT DECREASED [None]
